FAERS Safety Report 14330909 (Version 1)
Quarter: 2017Q4

REPORT INFORMATION
  Report Type: Spontaneous
  Country: US (occurrence: US)
  Receive Date: 20171228
  Receipt Date: 20171228
  Transmission Date: 20180321
  Serious: No
  Sender: FDA-Public Use
  Company Number: US-TEVA-2017-US-828418

PATIENT
  Age: 60 Year
  Sex: Female

DRUGS (2)
  1. OTFC-A [Suspect]
     Active Substance: FENTANYL CITRATE
     Indication: BREAST CANCER
  2. OTFC-A [Suspect]
     Active Substance: FENTANYL CITRATE
     Indication: PAIN

REACTIONS (4)
  - Lacrimal disorder [Not Recovered/Not Resolved]
  - Dry eye [Not Recovered/Not Resolved]
  - Eyelid ptosis [Not Recovered/Not Resolved]
  - Lacrimation increased [Not Recovered/Not Resolved]

NARRATIVE: CASE EVENT DATE: 201710
